FAERS Safety Report 7141498-8 (Version None)
Quarter: 2010Q4

REPORT INFORMATION
  Report Type: 
  Country: None (occurrence: None)
  Receive Date: 20101207
  Receipt Date: 20101125
  Transmission Date: 20110411
  Serious: Yes (Death)
  Sender: FDA-Public Use
  Company Number: BR-TYCO HEALTHCARE/MALLINCKRODT-T201002353

PATIENT
  Age: 58 Year
  Sex: Female

DRUGS (3)
  1. OPTIRAY 350 [Suspect]
     Indication: COMPUTERISED TOMOGRAM HEAD
     Dosage: 15 ML, SINGLE
     Route: 042
     Dates: start: 20101026, end: 20101026
  2. CAPTOPRIL [Concomitant]
     Indication: HYPERTENSION
     Dosage: 25 MG, UNK
  3. AMITRIPTYLINE [Concomitant]
     Indication: ANTIDEPRESSANT THERAPY
     Dosage: 25 MG, UNK

REACTIONS (3)
  - CARDIO-RESPIRATORY ARREST [None]
  - LARYNGEAL OEDEMA [None]
  - RESPIRATORY DISTRESS [None]
